FAERS Safety Report 9420229 (Version 1)
Quarter: 2013Q3

REPORT INFORMATION
  Report Type: Spontaneous
  Country: US (occurrence: US)
  Receive Date: 20130725
  Receipt Date: 20130725
  Transmission Date: 20140515
  Serious: No
  Sender: FDA-Public Use
  Company Number: US-PFIZER INC-2013216442

PATIENT
  Age: 60 Year
  Sex: Male
  Weight: 107 kg

DRUGS (1)
  1. ATORVASTATIN CALCIUM [Suspect]
     Indication: BLOOD CHOLESTEROL INCREASED
     Dosage: 80 MG, 1X/DAY
     Dates: start: 201302, end: 201303

REACTIONS (2)
  - Myalgia [Recovered/Resolved]
  - Drug ineffective [Unknown]
